FAERS Safety Report 15508637 (Version 5)
Quarter: 2020Q1

REPORT INFORMATION
  Report Type: Spontaneous
  Country: PT (occurrence: PT)
  Receive Date: 20181016
  Receipt Date: 20200107
  Transmission Date: 20200409
  Serious: Yes (Disabling)
  Sender: FDA-Public Use
  Company Number: PT-MYLANLABS-2018M1076061

PATIENT
  Age: 67 Year
  Sex: Male

DRUGS (11)
  1. CO-DIOVAN [Concomitant]
     Active Substance: HYDROCHLOROTHIAZIDE\VALSARTAN
     Indication: PRODUCT USED FOR UNKNOWN INDICATION
     Dosage: 1 TABLET IN THE MORNING
  2. DIPLEXIL [Suspect]
     Active Substance: VALPROATE SODIUM
     Indication: EPILEPSY
     Dosage: 1000 MG, QD, 1 TABLET IN THE MORNING AND 1 TABLET TO NIGHT
     Route: 048
     Dates: start: 20180131, end: 20180515
  3. METFORMIN [Concomitant]
     Active Substance: METFORMIN HYDROCHLORIDE
     Dosage: 500 MG, QD, AT LUNCH
  4. DIPLEXIL [Suspect]
     Active Substance: VALPROATE SODIUM
     Dosage: 500 UNK, DOSE REDUCED
  5. MYSOLINE [Concomitant]
     Active Substance: PRIMIDONE
     Indication: PRODUCT USED FOR UNKNOWN INDICATION
     Dosage: 1/8 AT BEDTIME
  6. PANTOPRAZOLE [Concomitant]
     Active Substance: PANTOPRAZOLE
     Indication: PRODUCT USED FOR UNKNOWN INDICATION
     Dosage: 20 MG FASTING
  7. CLOPIDOGREL [Concomitant]
     Active Substance: CLOPIDOGREL BISULFATE
     Indication: PRODUCT USED FOR UNKNOWN INDICATION
     Dosage: 75 MG AT LUNCH
  8. DIPLEXIL [Suspect]
     Active Substance: VALPROATE SODIUM
     Dosage: 250 MG, DOSE REDUCED
  9. SERTRALINE [Suspect]
     Active Substance: SERTRALINE HYDROCHLORIDE
     Indication: PRODUCT USED FOR UNKNOWN INDICATION
     Dosage: 50 MG, QD, 1 TABLET AT DINNER
     Route: 048
     Dates: start: 20180222
  10. LAVENTAIR [Concomitant]
     Indication: PRODUCT USED FOR UNKNOWN INDICATION
     Dosage: 55 MICROGRAM, QD
  11. PRAVAFENIX [Concomitant]
     Active Substance: FENOFIBRATE\PRAVASTATIN
     Indication: PRODUCT USED FOR UNKNOWN INDICATION
     Dosage: 1 NIGHT

REACTIONS (10)
  - Hypokinesia [Unknown]
  - Skin discolouration [Recovered/Resolved]
  - Muscle tightness [Recovered/Resolved]
  - Somnolence [Recovered/Resolved]
  - Coordination abnormal [Unknown]
  - Muscular weakness [Unknown]
  - Tremor [Unknown]
  - Muscle contractions involuntary [Unknown]
  - Muscle spasms [Unknown]
  - Hyperhidrosis [Recovered/Resolved]

NARRATIVE: CASE EVENT DATE: 20180222
